FAERS Safety Report 13511104 (Version 1)
Quarter: 2017Q2

REPORT INFORMATION
  Report Type: Report from Study
  Country: None (occurrence: US)
  Receive Date: 20170503
  Receipt Date: 20170503
  Transmission Date: 20170830
  Serious: Yes (Hospitalization, Other)
  Sender: FDA-Public Use
  Company Number: US-ABBVIE-16P-163-1766997-00

PATIENT
  Age: 68 Year
  Sex: Male
  Weight: 80.2 kg

DRUGS (17)
  1. VENETOCLAX [Suspect]
     Active Substance: VENETOCLAX
     Indication: CHRONIC LYMPHOCYTIC LEUKAEMIA
     Route: 048
     Dates: start: 20161018, end: 20161031
  2. NORMAL SALINE [Concomitant]
     Active Substance: SODIUM CHLORIDE
     Indication: PROPHYLAXIS
  3. FUROSEMIDE 10 MG/ML INJ [Concomitant]
     Indication: OEDEMA PERIPHERAL
     Route: 042
     Dates: start: 20161018, end: 20161027
  4. ORAL FLUIDS [Concomitant]
     Indication: PROPHYLAXIS
  5. AMLODIPINE TAB [Concomitant]
     Indication: HYPERTENSION
     Route: 048
     Dates: start: 20161018, end: 20161101
  6. NORMAL SALINE [Concomitant]
     Active Substance: SODIUM CHLORIDE
     Indication: TUMOUR LYSIS SYNDROME
     Route: 042
     Dates: start: 20161015, end: 20161123
  7. PANTOPRAZOLE DR TAB [Concomitant]
     Indication: GASTROOESOPHAGEAL REFLUX DISEASE
     Route: 048
     Dates: start: 20161018, end: 20161027
  8. GUAIFENESIN 100 MG/5 ML SOLN [Concomitant]
     Indication: ASPIRATION
  9. DIPHENOXYLATE-ATROPINE 2.5 - 0.025 MG TAB [Concomitant]
     Indication: DIARRHOEA
     Route: 048
     Dates: start: 20161019, end: 20161027
  10. ALLOPURINOL. [Concomitant]
     Active Substance: ALLOPURINOL
     Indication: PROPHYLAXIS
  11. MAGNESIUM SULFATE IN WATER FOR INJ 100 ML [Concomitant]
     Indication: HYPOMAGNESAEMIA
     Route: 042
     Dates: start: 20161018, end: 20161023
  12. GUAIFENESIN 100 MG/5 ML SOLN [Concomitant]
     Indication: COUGH
     Route: 048
     Dates: start: 20161018, end: 20161020
  13. ORAL FLUIDS [Concomitant]
     Indication: DEHYDRATION
  14. NOVOLOG 100 UNITS/ML INJ PEN [Concomitant]
     Indication: DIABETES MELLITUS
     Route: 058
     Dates: start: 20161024
  15. ALLOPURINOL. [Concomitant]
     Active Substance: ALLOPURINOL
     Indication: TUMOUR LYSIS SYNDROME
     Route: 048
     Dates: start: 20161018, end: 20161101
  16. ORAL FLUIDS [Concomitant]
     Indication: TUMOUR LYSIS SYNDROME
     Route: 048
     Dates: start: 20161015, end: 20161031
  17. NORMAL SALINE [Concomitant]
     Active Substance: SODIUM CHLORIDE
     Indication: DEHYDRATION

REACTIONS (3)
  - Dysphagia [Not Recovered/Not Resolved]
  - Gastric ulcer [Not Recovered/Not Resolved]
  - Erosive oesophagitis [Not Recovered/Not Resolved]

NARRATIVE: CASE EVENT DATE: 20161021
